FAERS Safety Report 5033819-7 (Version None)
Quarter: 2006Q2

REPORT INFORMATION
  Report Type: 
  Country: None (occurrence: None)
  Receive Date: 20060623
  Receipt Date: 20060616
  Transmission Date: 20061013
  Serious: Yes (Other)
  Sender: FDA-Public Use
  Company Number: ES-JNJFOC-20060603506

PATIENT
  Age: 77 Year
  Sex: Male

DRUGS (5)
  1. TAVANIC [Suspect]
     Indication: DRUG USE FOR UNKNOWN INDICATION
     Route: 048
     Dates: start: 20060401
  2. NORVASC [Concomitant]
     Indication: ESSENTIAL HYPERTENSION
     Route: 048
  3. CARDURAN [Concomitant]
     Indication: ESSENTIAL HYPERTENSION
     Route: 048
  4. FORTZAAR [Concomitant]
     Indication: ESSENTIAL HYPERTENSION
     Route: 048
  5. LOBIVON [Concomitant]
     Indication: ESSENTIAL HYPERTENSION
     Route: 048

REACTIONS (2)
  - MYALGIA [None]
  - MYOSITIS [None]
